FAERS Safety Report 5345809-5 (Version None)
Quarter: 2007Q2

REPORT INFORMATION
  Report Type: 
  Country: None (occurrence: None)
  Receive Date: 20070426
  Receipt Date: 20060912
  Transmission Date: 20071010
  Serious: Yes (Hospitalization)
  Sender: FDA-Public Use
  Company Number: US-JNJFOC-20060903269

PATIENT
  Age: 47 Year
  Sex: Female
  Weight: 66.6788 kg

DRUGS (5)
  1. ULTRAM [Suspect]
     Indication: DRUG USE FOR UNKNOWN INDICATION
     Dosage: SEE IMAGE
     Dates: start: 20010101, end: 20010101
  2. ULTRAM [Suspect]
     Indication: MIGRAINE
     Dosage: SEE IMAGE
     Dates: start: 20010101, end: 20010101
  3. ULTRAM [Suspect]
     Indication: DRUG USE FOR UNKNOWN INDICATION
     Dosage: SEE IMAGE
     Dates: start: 20010101
  4. ULTRAM [Suspect]
     Indication: MIGRAINE
     Dosage: SEE IMAGE
     Dates: start: 20010101
  5. NEURONTIN [Concomitant]

REACTIONS (5)
  - BRADYPHRENIA [None]
  - FATIGUE [None]
  - GRAND MAL CONVULSION [None]
  - PRURITUS [None]
  - URTICARIA [None]
